FAERS Safety Report 8544254-9 (Version None)
Quarter: 2012Q3

REPORT INFORMATION
  Report Type: 
  Country: None (occurrence: None)
  Receive Date: 20120727
  Receipt Date: 20120716
  Transmission Date: 20120928
  Serious: Yes (Other)
  Sender: FDA-Public Use
  Company Number: US-ELI_LILLY_AND_COMPANY-US201205008787

PATIENT
  Sex: Female

DRUGS (6)
  1. ZOPIDEM [Concomitant]
     Indication: PRODUCT USED FOR UNKNOWN INDICATION
     Dosage: 5 MG, UNK
  2. FORTEO [Suspect]
     Indication: OSTEOPOROSIS
     Dosage: 20 UG, QD
     Dates: start: 20110301
  3. CYMBALTA [Concomitant]
     Indication: DEPRESSION
     Dosage: 60 MG, UNK
  4. DEPAKOTE [Concomitant]
     Indication: CONVULSION
     Dosage: 250 MG, UNK
  5. DEPAKOTE [Concomitant]
     Dosage: 500 MG, EACH EVENING
  6. BUSPIRONE HCL [Concomitant]
     Indication: ANXIETY
     Dosage: 7.5 MG, PRN

REACTIONS (5)
  - ARTHRALGIA [None]
  - GRAND MAL CONVULSION [None]
  - PAIN [None]
  - BONE PAIN [None]
  - ABDOMINAL PAIN UPPER [None]
